FAERS Safety Report 7534028-X (Version None)
Quarter: 2011Q2

REPORT INFORMATION
  Report Type: 
  Country: None (occurrence: None)
  Receive Date: 20110608
  Receipt Date: 20060829
  Transmission Date: 20111010
  Serious: Yes (Hospitalization, Other)
  Sender: FDA-Public Use
  Company Number: PHNR2006AU00686

PATIENT
  Sex: Male

DRUGS (1)
  1. CLOZAPINE [Suspect]
     Indication: SCHIZOPHRENIA
     Dosage: 75-300 MG DAILY
     Dates: start: 19961028

REACTIONS (6)
  - SALMONELLOSIS [None]
  - GASTROENTERITIS BACTERIAL [None]
  - DIARRHOEA INFECTIOUS [None]
  - NEUTROPHIL COUNT INCREASED [None]
  - CULTURE STOOL [None]
  - C-REACTIVE PROTEIN INCREASED [None]
